FAERS Safety Report 4318232-X (Version None)
Quarter: 2004Q1

REPORT INFORMATION
  Report Type: 
  Country: None (occurrence: None)
  Receive Date: 20040315
  Receipt Date: 20040304
  Transmission Date: 20041129
  Serious: Yes (Hospitalization)
  Sender: FDA-Public Use
  Company Number: 04P-056-0252512-00

PATIENT
  Age: 66 Year
  Sex: Male

DRUGS (5)
  1. RYTHMOL [Suspect]
     Indication: ATRIAL FIBRILLATION
     Dosage: 600.0 MG (600.0  MG 1 IN 1 D)  PER ORAL
     Route: 048
     Dates: start: 20040115, end: 20040202
  2. AMIODARONE HCL [Suspect]
     Indication: ATRIAL FIBRILLATION
     Dosage: 200.0 MG (200.0 MG, 1 IN 1 D) PER ORAL
     Route: 048
     Dates: start: 20040115, end: 20040202
  3. INDAPAMIDE [Suspect]
     Indication: ATRIAL FIBRILLATION
     Dosage: 1.0 DOSAGE FORMS (1.0 DOSAGE FORMS, 1 IN 1 D) PER ORAL
     Route: 048
     Dates: start: 20040115, end: 20040202
  4. CANDESARTAN CILEXETIL [Suspect]
     Indication: ATRIAL FIBRILLATION
     Dosage: 1.0 DOSAGE FORMS (1.0 DOSAGE FORMS, 1 IN 1 D) PER ORAL
     Route: 048
     Dates: start: 20040115, end: 20040202
  5. FLUINDIONE [Suspect]
     Indication: ATRIAL FIBRILLATION
     Dosage: 10.0 MG (10.0 MG, 1 IN 1 D) PER ORAL
     Route: 048
     Dates: start: 20040115

REACTIONS (2)
  - RASH ERYTHEMATOUS [None]
  - RASH PUSTULAR [None]
